FAERS Safety Report 14846791 (Version 1)
Quarter: 2018Q2

REPORT INFORMATION
  Report Type: Spontaneous
  Country: US (occurrence: US)
  Receive Date: 20180504
  Receipt Date: 20180504
  Transmission Date: 20180711
  Serious: Yes (Other)
  Sender: FDA-Public Use
  Company Number: US-RECKITT BENCKISER HEALTHCARE INT LIMITED-RB-85751-2018

PATIENT
  Age: 56 Year
  Sex: Male

DRUGS (1)
  1. MUCINEX FAST-MAX SEVERE CONGESTION AND COUGH [Suspect]
     Active Substance: DEXTROMETHORPHAN HYDROBROMIDE\GUAIFENESIN\PHENYLEPHRINE HYDROCHLORIDE
     Indication: NASOPHARYNGITIS
     Dosage: 20 ML, SINGLE
     Route: 065
     Dates: start: 20180429

REACTIONS (5)
  - Syncope [Recovering/Resolving]
  - Dizziness [Recovered/Resolved]
  - Throat tightness [Recovering/Resolving]
  - Gait disturbance [Recovering/Resolving]
  - Palpitations [Recovering/Resolving]

NARRATIVE: CASE EVENT DATE: 20180429
